FAERS Safety Report 6347830-7 (Version None)
Quarter: 2009Q3

REPORT INFORMATION
  Report Type: 
  Country: None (occurrence: None)
  Receive Date: 20090910
  Receipt Date: 20090901
  Transmission Date: 20100115
  Serious: Yes (Hospitalization)
  Sender: FDA-Public Use
  Company Number: B0590753A

PATIENT
  Sex: Male
  Weight: 50 kg

DRUGS (5)
  1. KIVEXA [Suspect]
     Indication: HIV INFECTION
     Dosage: 1TAB PER DAY
     Route: 048
     Dates: start: 20090715, end: 20090820
  2. KALETRA [Suspect]
     Indication: HIV INFECTION
     Dosage: 1TAB TWICE PER DAY
     Route: 048
     Dates: start: 20090601, end: 20090820
  3. WELLVONE [Concomitant]
  4. INEXIUM [Concomitant]
  5. CONTRAMAL [Concomitant]

REACTIONS (10)
  - ABDOMINAL PAIN [None]
  - ACID BASE BALANCE ABNORMAL [None]
  - GAMMA-GLUTAMYLTRANSFERASE INCREASED [None]
  - HAEMOGLOBIN DECREASED [None]
  - HYPERLACTACIDAEMIA [None]
  - LIPASE INCREASED [None]
  - MITOCHONDRIAL CYTOPATHY [None]
  - OVERDOSE [None]
  - PANCREATITIS ACUTE [None]
  - VOMITING [None]
